FAERS Safety Report 23243375 (Version 2)
Quarter: 2023Q4

REPORT INFORMATION
  Report Type: Spontaneous
  Country: HR (occurrence: HR)
  Receive Date: 20231130
  Receipt Date: 20231208
  Transmission Date: 20240110
  Serious: Yes (Hospitalization, Other)
  Sender: FDA-Public Use
  Company Number: HR-ABBVIE-5516827

PATIENT
  Sex: Female

DRUGS (5)
  1. VENETOCLAX [Suspect]
     Active Substance: VENETOCLAX
     Indication: Chronic lymphocytic leukaemia
     Dosage: 200 MILLIGRAM?LAST ADMIN DATE WAS 2023
     Route: 048
     Dates: start: 20230706
  2. VENETOCLAX [Suspect]
     Active Substance: VENETOCLAX
     Indication: Chronic lymphocytic leukaemia
     Dosage: 400 MILLIGRAM
     Route: 048
     Dates: start: 20221010, end: 20230301
  3. VENETOCLAX [Suspect]
     Active Substance: VENETOCLAX
     Indication: Chronic lymphocytic leukaemia
     Dosage: 400 MILLIGRAM
     Route: 048
     Dates: start: 20230309, end: 20230705
  4. APIXABAN [Concomitant]
     Active Substance: APIXABAN
     Indication: Product used for unknown indication
  5. OBINUTUZUMAB [Concomitant]
     Active Substance: OBINUTUZUMAB
     Indication: Chronic lymphocytic leukaemia
     Dates: start: 20221010

REACTIONS (16)
  - Thrombocytopenia [Unknown]
  - Depression [Unknown]
  - Atrial fibrillation [Unknown]
  - Neutropenia [Unknown]
  - Microcytic anaemia [Unknown]
  - Pyrexia [Recovered/Resolved]
  - Cough [Recovered/Resolved]
  - Oropharyngeal pain [Recovered/Resolved]
  - Catarrh [Recovered/Resolved]
  - Joint injury [Recovered/Resolved with Sequelae]
  - Upper respiratory tract infection [Recovered/Resolved]
  - Sneezing [Recovered/Resolved]
  - Haemorrhoidal haemorrhage [Unknown]
  - Suicide attempt [Recovered/Resolved with Sequelae]
  - Conjunctival haemorrhage [Unknown]
  - Iron deficiency [Unknown]

NARRATIVE: CASE EVENT DATE: 20221130
